FAERS Safety Report 7932064-2 (Version None)
Quarter: 2011Q4

REPORT INFORMATION
  Report Type: 
  Country: None (occurrence: None)
  Receive Date: 20111121
  Receipt Date: 20111114
  Transmission Date: 20120403
  Serious: Yes (Disabling)
  Sender: FDA-Public Use
  Company Number: CA-ASTRAZENECA-2011SE68922

PATIENT
  Age: 74 Year
  Sex: Female

DRUGS (7)
  1. LIQUICAL [Concomitant]
     Route: 048
  2. ASAPHEN [Concomitant]
     Route: 048
  3. TOLOXIN [Concomitant]
  4. COUMADIN [Concomitant]
  5. FERROUS SULFATE TAB [Concomitant]
     Route: 048
  6. SYNTHROID [Concomitant]
     Route: 048
  7. ATACAND [Suspect]
     Route: 048

REACTIONS (2)
  - SCIATICA [None]
  - MYALGIA [None]
